FAERS Safety Report 10432784 (Version 1)
Quarter: 2014Q3

REPORT INFORMATION
  Report Type: Spontaneous
  Country: CN (occurrence: None)
  Receive Date: 20140903
  Receipt Date: 20140903
  Transmission Date: 20150326
  Serious: Yes (Hospitalization, Other)
  Sender: FDA-Public Use
  Company Number: 2014/061

PATIENT
  Age: 75 Year

DRUGS (1)
  1. OLANZAPINE (NO PREF.NAME) [Suspect]
     Active Substance: OLANZAPINE
     Indication: SCHIZOPHRENIA
     Dates: start: 201203, end: 201206

REACTIONS (4)
  - Ventricular tachycardia [None]
  - Hypokalaemia [None]
  - Torsade de pointes [None]
  - Palpitations [None]

NARRATIVE: CASE EVENT DATE: 20120318
